FAERS Safety Report 6235494-2 (Version None)
Quarter: 2009Q2

REPORT INFORMATION
  Report Type: 
  Country: None (occurrence: None)
  Receive Date: 20090618
  Receipt Date: 20080522
  Transmission Date: 20091009
  Serious: No
  Sender: FDA-Public Use
  Company Number: US-ASTRAZENECA-2008UW10547

PATIENT
  Age: 58 Year
  Sex: Female
  Weight: 72.6 kg

DRUGS (3)
  1. RHINOCORT [Suspect]
     Indication: RHINORRHOEA
     Route: 045
  2. RHINOCORT [Suspect]
     Indication: VIRAL INFECTION
     Route: 045
  3. RHINOCORT [Suspect]
     Indication: SNEEZING
     Route: 045

REACTIONS (2)
  - MALAISE [None]
  - OROPHARYNGEAL PAIN [None]
